FAERS Safety Report 4564429-3 (Version None)
Quarter: 2005Q1

REPORT INFORMATION
  Report Type: 
  Country: None (occurrence: None)
  Receive Date: 20050128
  Receipt Date: 20040716
  Transmission Date: 20050727
  Serious: No
  Sender: FDA-Public Use
  Company Number: US-GLAXOSMITHKLINE-A0518613A

PATIENT
  Sex: Male

DRUGS (4)
  1. EPIVIR [Suspect]
     Indication: HIV INFECTION
     Route: 048
  2. RETROVIR [Suspect]
     Indication: HIV INFECTION
     Route: 048
  3. ZIAGEN [Suspect]
     Indication: HIV INFECTION
     Route: 048
  4. VIRAMUNE [Concomitant]

REACTIONS (5)
  - CHEST PAIN [None]
  - COUGH [None]
  - DIARRHOEA [None]
  - FATIGUE [None]
  - PHARYNGOLARYNGEAL PAIN [None]
